FAERS Safety Report 5081009-4 (Version None)
Quarter: 2006Q3

REPORT INFORMATION
  Report Type: 
  Country: None (occurrence: None)
  Receive Date: 20060810
  Receipt Date: 20060711
  Transmission Date: 20061208
  Serious: Yes (Hospitalization)
  Sender: FDA-Public Use
  Company Number: HQWYE412419MAY06

PATIENT
  Age: 37 Year
  Sex: Female

DRUGS (3)
  1. LEVONORGESTREL + ETHINYL ESTRADIOL [Suspect]
     Indication: CONTRACEPTION
     Dosage: ORAL
     Route: 048
     Dates: start: 19850101, end: 19920101
  2. LEVONORGESTREL + ETHINYL ESTRADIOL [Suspect]
     Indication: CONTRACEPTION
     Dosage: ORAL
     Route: 048
     Dates: start: 19941201, end: 19950101
  3. LEVONORGESTREL + ETHINYL ESTRADIOL [Suspect]
     Indication: CONTRACEPTION
     Dosage: ORAL
     Route: 048
     Dates: start: 19970101

REACTIONS (13)
  - ANTIPHOSPHOLIPID ANTIBODIES POSITIVE [None]
  - APHASIA [None]
  - BLOOD LACTATE DEHYDROGENASE ABNORMAL [None]
  - BRAIN OEDEMA [None]
  - C-REACTIVE PROTEIN INCREASED [None]
  - EXTENSOR PLANTAR RESPONSE [None]
  - GRAND MAL CONVULSION [None]
  - HAEMORRHAGIC CEREBRAL INFARCTION [None]
  - HEMIPARESIS [None]
  - INTRACRANIAL VENOUS SINUS THROMBOSIS [None]
  - PROTEIN C DECREASED [None]
  - WHITE BLOOD CELL COUNT INCREASED [None]
  - WHITE BLOOD CELL DISORDER [None]
